FAERS Safety Report 10152615 (Version 2)
Quarter: 2014Q3

REPORT INFORMATION
  Report Type: Spontaneous
  Country: US (occurrence: US)
  Receive Date: 20140505
  Receipt Date: 20140707
  Transmission Date: 20150326
  Serious: Yes (Death, Hospitalization, Other)
  Sender: FDA-Public Use
  Company Number: US-FRI-1000066880

PATIENT
  Age: 85 Year
  Sex: Female

DRUGS (1)
  1. NAMENDA [Suspect]
     Active Substance: MEMANTINE HYDROCHLORIDE
     Indication: DEMENTIA ALZHEIMER^S TYPE
     Dosage: 20 MG

REACTIONS (3)
  - Fall [Recovered/Resolved]
  - Urosepsis [Fatal]
  - Head injury [Unknown]

NARRATIVE: CASE EVENT DATE: 201401
